FAERS Safety Report 20723934 (Version 4)
Quarter: 2023Q1

REPORT INFORMATION
  Report Type: Report from Study
  Country: MX (occurrence: MX)
  Receive Date: 20220419
  Receipt Date: 20230214
  Transmission Date: 20230417
  Serious: Yes (Hospitalization, Other)
  Sender: FDA-Public Use
  Company Number: MX-NOVARTISPH-NVSC2022MX049596

PATIENT
  Sex: Male
  Weight: 87 kg

DRUGS (2)
  1. TASIGNA [Suspect]
     Active Substance: NILOTINIB
     Indication: Chronic myeloid leukaemia
     Dosage: UNK
     Route: 048
     Dates: start: 201510
  2. TASIGNA [Suspect]
     Active Substance: NILOTINIB
     Dosage: UNK
     Route: 048

REACTIONS (22)
  - Haemoglobin decreased [Unknown]
  - Drug dependence [Unknown]
  - Fear [Unknown]
  - Food allergy [Unknown]
  - Infection [Unknown]
  - Abdominal discomfort [Unknown]
  - Inflammation [Unknown]
  - Pyrexia [Unknown]
  - Somnambulism [Unknown]
  - Claustrophobia [Unknown]
  - Feeling of despair [Unknown]
  - Oropharyngeal discomfort [Recovering/Resolving]
  - Memory impairment [Unknown]
  - Stress [Unknown]
  - Sleep talking [Unknown]
  - Pain [Unknown]
  - Anxiety [Unknown]
  - Depression [Unknown]
  - Insomnia [Unknown]
  - Headache [Unknown]
  - Palpitations [Unknown]
  - Pain in extremity [Unknown]

NARRATIVE: CASE EVENT DATE: 20180101
